FAERS Safety Report 16281547 (Version 5)
Quarter: 2019Q2

REPORT INFORMATION
  Report Type: Spontaneous
  Country: HR (occurrence: HR)
  Receive Date: 20190507
  Receipt Date: 20190527
  Transmission Date: 20190711
  Serious: Yes (Other)
  Sender: FDA-Public Use
  Company Number: HR-PFIZER INC-2019190083

PATIENT
  Age: 29 Year
  Sex: Male

DRUGS (6)
  1. SALINE R [Concomitant]
     Indication: RELAPSING-REMITTING MULTIPLE SCLEROSIS
     Dosage: 250 ML, UNK (DURING ONE HOUR FOR 5 DAYS)
     Route: 042
     Dates: start: 2013
  2. GADOLINIUM [Concomitant]
     Active Substance: GADOLINIUM
     Dosage: UNK
     Dates: start: 201102
  3. METHYLPREDNISOLONE SODIUM SUCCINATE. [Suspect]
     Active Substance: METHYLPREDNISOLONE SODIUM SUCCINATE
     Indication: RELAPSING-REMITTING MULTIPLE SCLEROSIS
     Dosage: UNK (HIGH DOSE PULSE METHYLPREDNISOLONE)
     Route: 042
     Dates: start: 201102
  4. METHYLPREDNISOLONE SODIUM SUCCINATE. [Suspect]
     Active Substance: METHYLPREDNISOLONE SODIUM SUCCINATE
     Dosage: 1000 MG, UNK (IN 250 ML OF SALINE INTRAVENOUSLY DURING ONE HOUR FOR 5 DAYS)
     Route: 042
     Dates: start: 2013
  5. METHYLPREDNISOLONE SODIUM SUCCINATE. [Suspect]
     Active Substance: METHYLPREDNISOLONE SODIUM SUCCINATE
     Dosage: UNK (SAME HIGH-DOSE STEROID TREATMENT)
     Route: 042
     Dates: start: 201311
  6. INTERFERON BETA 1B [Concomitant]
     Active Substance: INTERFERON BETA-1B
     Indication: RELAPSING-REMITTING MULTIPLE SCLEROSIS
     Dosage: UNK
     Dates: start: 201202

REACTIONS (1)
  - Atrial fibrillation [Recovered/Resolved]

NARRATIVE: CASE EVENT DATE: 2013
